FAERS Safety Report 20226393 (Version 1)
Quarter: 2021Q4

REPORT INFORMATION
  Report Type: Spontaneous
  Country: US (occurrence: US)
  Receive Date: 20211224
  Receipt Date: 20211224
  Transmission Date: 20220303
  Serious: Yes (Death)
  Sender: FDA-Public Use
  Company Number: US-BTGSP-US-BTGSP-21-0159

PATIENT
  Sex: Male

DRUGS (4)
  1. VORAXAZE [Suspect]
     Active Substance: GLUCARPIDASE
     Indication: Toxicity to various agents
     Dosage: 1 VIAL AT HOUR 12 POST-MTX
     Route: 065
  2. VORAXAZE [Suspect]
     Active Substance: GLUCARPIDASE
     Dosage: 1 VIAL AT HOUR 16 POST THE FIRST GLUCARPIDASE DOSE
     Route: 065
  3. VORAXAZE [Suspect]
     Active Substance: GLUCARPIDASE
     Dosage: 3 VIALS
     Route: 065
  4. METHOTREXATE [Suspect]
     Active Substance: METHOTREXATE
     Indication: Diffuse large B-cell lymphoma
     Dosage: UNK
     Route: 065

REACTIONS (2)
  - Death [Fatal]
  - Off label use [Unknown]
